FAERS Safety Report 18722686 (Version 1)
Quarter: 2021Q1

REPORT INFORMATION
  Report Type: Spontaneous
  Country: IN (occurrence: IN)
  Receive Date: 20210111
  Receipt Date: 20210111
  Transmission Date: 20210419
  Serious: Yes (Other)
  Sender: FDA-Public Use
  Company Number: IN-CADILA HEALTHCARE LIMITED-IN-ZYDUS-060371

PATIENT

DRUGS (1)
  1. METHYLPREDNISOLONE 8 MG TABLETS [Suspect]
     Active Substance: METHYLPREDNISOLONE
     Indication: AUTOIMMUNE HAEMOLYTIC ANAEMIA
     Dosage: 8 MILLIGRAM/KILOGRAM, QD
     Route: 042

REACTIONS (2)
  - Bradyarrhythmia [Recovered/Resolved]
  - Hypokalaemia [Recovered/Resolved]
